FAERS Safety Report 10358814 (Version 1)
Quarter: 2014Q3

REPORT INFORMATION
  Report Type: Spontaneous
  Country: US (occurrence: US)
  Receive Date: 20140804
  Receipt Date: 20140804
  Transmission Date: 20150326
  Serious: Yes (Other)
  Sender: FDA-Public Use
  Company Number: US-AMGEN-USASP2014057279

PATIENT
  Sex: Female
  Weight: 47.62 kg

DRUGS (1)
  1. PROLIA [Suspect]
     Active Substance: DENOSUMAB
     Indication: OSTEOPOROSIS POSTMENOPAUSAL
     Route: 065

REACTIONS (17)
  - Gastrointestinal disorder [Unknown]
  - Back pain [Unknown]
  - Asthenia [Unknown]
  - Vitamin D deficiency [Unknown]
  - Decreased activity [Unknown]
  - Inadequate diet [Unknown]
  - Liver disorder [Unknown]
  - Chronic obstructive pulmonary disease [Unknown]
  - Spinal deformity [Unknown]
  - Groin pain [Unknown]
  - Mobility decreased [Unknown]
  - Body height decreased [Unknown]
  - Bone density decreased [Unknown]
  - Hypertension [Unknown]
  - Dyspepsia [Unknown]
  - General physical health deterioration [Unknown]
  - Oestrogen deficiency [Unknown]
